FAERS Safety Report 25246935 (Version 1)
Quarter: 2025Q2

REPORT INFORMATION
  Report Type: Spontaneous
  Country: US (occurrence: None)
  Receive Date: 20250428
  Receipt Date: 20250428
  Transmission Date: 20250716
  Serious: Yes (Other)
  Sender: FDA-CTU
  Company Number: None

PATIENT
  Age: 61 Year
  Sex: Female
  Weight: 92.25 kg

DRUGS (9)
  1. REPATHA [Suspect]
     Active Substance: EVOLOCUMAB
     Indication: Blood cholesterol increased
     Dates: start: 20230928, end: 20241223
  2. LISINOPRIL [Concomitant]
     Active Substance: LISINOPRIL
  3. SYNTHROID [Concomitant]
     Active Substance: LEVOTHYROXINE SODIUM
  4. Citomel [Concomitant]
  5. ASPIRIN [Concomitant]
     Active Substance: ASPIRIN
  6. ESTRADIOL [Concomitant]
     Active Substance: ESTRADIOL
  7. B1 [Concomitant]
  8. COENZYME Q10 [Concomitant]
     Active Substance: DIETARY SUPPLEMENT\UBIDECARENONE
  9. VITAMIN D3 [Concomitant]
     Active Substance: CHOLECALCIFEROL

REACTIONS (8)
  - Muscular weakness [None]
  - Myalgia [None]
  - Neuralgia [None]
  - Paraesthesia [None]
  - Quality of life decreased [None]
  - Palpitations [None]
  - Blood cholesterol increased [None]
  - Vitamin B1 decreased [None]

NARRATIVE: CASE EVENT DATE: 20250120
